FAERS Safety Report 18587267 (Version 1)
Quarter: 2020Q4

REPORT INFORMATION
  Report Type: Spontaneous
  Country: US (occurrence: US)
  Receive Date: 20201207
  Receipt Date: 20201207
  Transmission Date: 20210114
  Serious: Yes (Death, Hospitalization, Other)
  Sender: FDA-Public Use
  Company Number: US-SA-2020SA349587

PATIENT

DRUGS (1)
  1. TOUJEO [Suspect]
     Active Substance: INSULIN GLARGINE
     Dosage: 14 IU

REACTIONS (11)
  - Haematemesis [Unknown]
  - Abdominal pain upper [Unknown]
  - Cardiogenic shock [Fatal]
  - Blood glucose increased [Unknown]
  - Renal failure [Fatal]
  - Hyperhidrosis [Recovered/Resolved]
  - Illness [Unknown]
  - Hypotension [Unknown]
  - Hepatic failure [Fatal]
  - Somnolence [Unknown]
  - Dysstasia [Unknown]
